FAERS Safety Report 4639837-2 (Version None)
Quarter: 2005Q2

REPORT INFORMATION
  Report Type: 
  Country: None (occurrence: None)
  Receive Date: 20050415
  Receipt Date: 20050404
  Transmission Date: 20051028
  Serious: Yes (Hospitalization)
  Sender: FDA-Public Use
  Company Number: 05P-056-0296274-00

PATIENT
  Age: 46 Year
  Sex: Female

DRUGS (3)
  1. DEPAKINE (SODIUM VALPROATE) (SODIUM VALPROATE) [Suspect]
     Indication: EPILEPSY
     Dosage: ORAL
     Route: 048
     Dates: start: 19980101
  2. PHENOBARBITAL [Concomitant]
  3. CALCIFEDIOL [Concomitant]

REACTIONS (2)
  - DISEASE RECURRENCE [None]
  - SWEAT GLAND INFECTION [None]
